FAERS Safety Report 9789385 (Version 2)
Quarter: 2014Q1

REPORT INFORMATION
  Report Type: Spontaneous
  Country: US (occurrence: US)
  Receive Date: 20131231
  Receipt Date: 20140111
  Transmission Date: 20141002
  Serious: Yes (Death)
  Sender: FDA-Public Use
  Company Number: US-ROCHE-1327691

PATIENT
  Sex: Male

DRUGS (3)
  1. AVASTIN [Suspect]
     Indication: NON-SMALL CELL LUNG CANCER STAGE IV
     Route: 065
     Dates: start: 20121207, end: 20130419
  2. CARBOPLATIN [Concomitant]
     Route: 065
  3. PAXIL [Concomitant]
     Route: 065

REACTIONS (1)
  - Lung cancer metastatic [Fatal]
